FAERS Safety Report 7989082-8 (Version None)
Quarter: 2011Q4

REPORT INFORMATION
  Report Type: 
  Country: None (occurrence: None)
  Receive Date: 20111219
  Receipt Date: 20111207
  Transmission Date: 20120403
  Serious: Yes (Hospitalization)
  Sender: FDA-Public Use
  Company Number: US-US-EMD SERONO, INC.-7089663

PATIENT
  Sex: Male
  Weight: 62 kg

DRUGS (12)
  1. BACLOFEN [Concomitant]
     Indication: MUSCLE SPASMS
  2. REBIF [Suspect]
     Indication: MULTIPLE SCLEROSIS
     Route: 058
     Dates: start: 20110803, end: 20110905
  3. DEPRESSION MEDICATION [Concomitant]
  4. MARIJUANA [Concomitant]
     Indication: DECREASED APPETITE
  5. XANAX [Concomitant]
     Indication: ANXIETY
  6. ANTI-ANXIETY MEDICATION [Concomitant]
     Indication: ANXIETY
  7. MARIJUANA [Concomitant]
     Indication: MUSCLE SPASMS
  8. ZYRTEC [Concomitant]
  9. IBUPROFEN [Concomitant]
     Indication: PREMEDICATION
  10. ZOLPIDEM [Concomitant]
  11. REBIF [Suspect]
     Route: 058
     Dates: end: 20110905
  12. REBIF [Suspect]
     Route: 058
     Dates: start: 20111128

REACTIONS (9)
  - SUICIDAL IDEATION [None]
  - HEAD INJURY [None]
  - ASTHENIA [None]
  - CHILLS [None]
  - TREMOR [None]
  - FALL [None]
  - INJECTION SITE PAIN [None]
  - MULTIPLE SCLEROSIS RELAPSE [None]
  - PYREXIA [None]
